FAERS Safety Report 16027789 (Version 1)
Quarter: 2019Q1

REPORT INFORMATION
  Report Type: Spontaneous
  Country: KR (occurrence: KR)
  Receive Date: 20190304
  Receipt Date: 20190304
  Transmission Date: 20190418
  Serious: Yes (Hospitalization, Other)
  Sender: FDA-Public Use
  Company Number: KR-009507513-1902KOR010511

PATIENT
  Sex: Male

DRUGS (9)
  1. KEYTRUDA [Suspect]
     Active Substance: PEMBROLIZUMAB
     Indication: BILE DUCT CANCER
     Dosage: QUANTITY 2, DAYS 1
     Dates: start: 20190201
  2. TRIZELE [Concomitant]
     Active Substance: METRONIDAZOLE
     Dosage: QUANTITY 1 DAYS 1
     Dates: start: 20190128, end: 20190130
  3. KEYTRUDA [Suspect]
     Active Substance: PEMBROLIZUMAB
     Indication: BILE DUCT STONE
  4. SODIUM CHLORIDE. [Concomitant]
     Active Substance: SODIUM CHLORIDE
     Dosage: QUANTITY 1 DAYS 2
     Dates: start: 20190128, end: 20190128
  5. TRIZELE [Concomitant]
     Active Substance: METRONIDAZOLE
     Dosage: QUANTITY 3 DAYS 2
     Dates: start: 20190129, end: 20190130
  6. XENETIX [Concomitant]
     Active Substance: IOBITRIDOL
     Dosage: QUANTITY 0.3 DAYS 1
     Dates: start: 20190128, end: 20190128
  7. DEXTROSE (+) POTASSIUM (UNSPECIFIED) (+) SODIUM (UNSPECIFIED) [Concomitant]
     Dosage: QUANTITY 2 DAYS 1
     Dates: start: 20190129, end: 20190129
  8. TRISONE (CEFTRIAXONE SODIUM (+) SODIUM CHLORIDE) [Concomitant]
     Dosage: QUANTITY 1 DAYS 4
     Dates: start: 20190128, end: 20190131
  9. BEECOM [Concomitant]
     Dosage: QUANTITY 1 DAYS 29
     Dates: start: 20190129, end: 20190201

REACTIONS (3)
  - Malignant neoplasm progression [Unknown]
  - Jaundice [Unknown]
  - Product use in unapproved indication [Unknown]

NARRATIVE: CASE EVENT DATE: 201902
